FAERS Safety Report 18186443 (Version 1)
Quarter: 2020Q3

REPORT INFORMATION
  Report Type: Spontaneous
  Country: US (occurrence: US)
  Receive Date: 20200824
  Receipt Date: 20200824
  Transmission Date: 20201103
  Serious: Yes (Hospitalization)
  Sender: FDA-Public Use
  Company Number: US-STRIDES ARCOLAB LIMITED-2020SP009571

PATIENT
  Age: 40 Year
  Sex: Female

DRUGS (6)
  1. METHYLPREDNISOLONE. [Concomitant]
     Active Substance: METHYLPREDNISOLONE
     Indication: ALLOGENIC STEM CELL TRANSPLANTATION
     Dosage: 4 MILLIGRAM, BID
     Route: 065
  2. ACICLOVIR [Concomitant]
     Active Substance: ACYCLOVIR
     Indication: PRODUCT USED FOR UNKNOWN INDICATION
     Dosage: UNK
     Route: 065
  3. COTRIMOXAZOLE [Concomitant]
     Active Substance: SULFAMETHOXAZOLE\TRIMETHOPRIM
     Indication: PRODUCT USED FOR UNKNOWN INDICATION
     Dosage: UNK
     Route: 065
  4. TACROLIMUS. [Suspect]
     Active Substance: TACROLIMUS
     Dosage: UNK (RESTARTED)
     Route: 065
  5. TACROLIMUS. [Suspect]
     Active Substance: TACROLIMUS
     Indication: ALLOGENIC STEM CELL TRANSPLANTATION
     Dosage: 1 MILLIGRAM, BID
     Route: 065
  6. ATENOLOL. [Concomitant]
     Active Substance: ATENOLOL
     Indication: PRODUCT USED FOR UNKNOWN INDICATION
     Dosage: UNK
     Route: 065

REACTIONS (23)
  - Nausea [Recovered/Resolved]
  - Pneumonia [Recovered/Resolved]
  - Cachexia [Recovered/Resolved]
  - Asthenia [Recovered/Resolved]
  - Off label use [Unknown]
  - Depressed level of consciousness [Recovered/Resolved]
  - Encephalopathy [Recovered/Resolved]
  - Confusional state [Recovered/Resolved]
  - Mucosal dryness [Recovered/Resolved]
  - Acute kidney injury [Recovered/Resolved]
  - Muscle spasms [Recovered/Resolved]
  - Mycobacterium abscessus infection [Recovered/Resolved]
  - Pseudomonas infection [Recovered/Resolved]
  - Sepsis [Recovered/Resolved]
  - Electrolyte imbalance [Recovered/Resolved]
  - Toxicity to various agents [Recovered/Resolved]
  - Somnolence [Recovered/Resolved]
  - Hyperkalaemia [Recovered/Resolved]
  - Speech disorder [Recovered/Resolved]
  - Bronchitis [Recovered/Resolved]
  - Hyperglycaemia [Recovered/Resolved]
  - Hypertension [Recovered/Resolved]
  - Diabetic ketoacidosis [Recovered/Resolved]
